FAERS Safety Report 10978662 (Version 1)
Quarter: 2015Q2

REPORT INFORMATION
  Report Type: Spontaneous
  Country: IT (occurrence: IT)
  Receive Date: 20150402
  Receipt Date: 20150402
  Transmission Date: 20150821
  Serious: Yes (Other)
  Sender: FDA-Public Use
  Company Number: IT-WATSON-2015-06648

PATIENT
  Age: 84 Year
  Sex: Male

DRUGS (2)
  1. MEMANTINA [Concomitant]
     Active Substance: MEMANTINE HYDROCHLORIDE
     Indication: DEMENTIA ALZHEIMER^S TYPE
     Dosage: 10 MG, UNKNOWN
     Route: 048
     Dates: start: 20141223, end: 20150319
  2. RIVASTIGMINE ACTAVIS [Suspect]
     Active Substance: RIVASTIGMINE
     Indication: DEMENTIA ALZHEIMER^S TYPE
     Dosage: 6 MG, DAILY
     Route: 065
     Dates: start: 20141223, end: 20150106

REACTIONS (2)
  - Altered state of consciousness [Recovering/Resolving]
  - Petit mal epilepsy [Recovering/Resolving]

NARRATIVE: CASE EVENT DATE: 20141228
